FAERS Safety Report 15929755 (Version 5)
Quarter: 2020Q1

REPORT INFORMATION
  Report Type: Report from Study
  Country: JP (occurrence: JP)
  Receive Date: 20190206
  Receipt Date: 20200103
  Transmission Date: 20200409
  Serious: Yes (Other)
  Sender: FDA-Public Use
  Company Number: JP-BIOCODEX SA-201801337

PATIENT

DRUGS (27)
  1. MYSTAN [Suspect]
     Active Substance: CLOBAZAM
     Dosage: 3 MG, QD
     Route: 048
     Dates: start: 20170803, end: 20170809
  2. MYSTAN [Suspect]
     Active Substance: CLOBAZAM
     Dosage: 4 MG, QD
     Route: 048
     Dates: start: 20180112, end: 20180126
  3. LEVOCARNITINE. [Concomitant]
     Active Substance: LEVOCARNITINE
     Indication: PROPHYLAXIS
     Dosage: UNK
     Route: 048
  4. SODIUM VALPROATE SANDOZ [Concomitant]
     Active Substance: VALPROATE SODIUM
     Indication: SEVERE MYOCLONIC EPILEPSY OF INFANCY
     Dosage: 199.8 MG, QD
     Route: 048
     Dates: start: 20161207, end: 20180403
  5. LEVETIRACETAM. [Concomitant]
     Active Substance: LEVETIRACETAM
     Dosage: 250 MG, QD
     Route: 048
     Dates: start: 20170822, end: 20170925
  6. SODIUM VALPROATE SANDOZ [Concomitant]
     Active Substance: VALPROATE SODIUM
     Dosage: 240 MG, QD
     Route: 048
     Dates: start: 20180404, end: 20180508
  7. LEVETIRACETAM. [Concomitant]
     Active Substance: LEVETIRACETAM
     Dosage: 150 MG, QD
     Route: 048
     Dates: start: 20171206, end: 20180222
  8. DIACOMIT [Suspect]
     Active Substance: STIRIPENTOL
     Dosage: 150 MG, QD
     Route: 048
     Dates: start: 20170829, end: 20170904
  9. MYSTAN [Suspect]
     Active Substance: CLOBAZAM
     Dosage: 3.5 MG,QD
     Route: 048
     Dates: start: 20180127, end: 20180222
  10. MYSTAN [Suspect]
     Active Substance: CLOBAZAM
     Dosage: 2 MG, QD
     Route: 048
     Dates: start: 20181023, end: 20181205
  11. LEVETIRACETAM. [Concomitant]
     Active Substance: LEVETIRACETAM
     Indication: SEVERE MYOCLONIC EPILEPSY OF INFANCY
     Dosage: 300 MG, QD
     Route: 048
     Dates: end: 20170821
  12. LEVETIRACETAM. [Concomitant]
     Active Substance: LEVETIRACETAM
     Dosage: 100 MG, QD
     Route: 048
     Dates: start: 20180614, end: 20180620
  13. LEVETIRACETAM. [Concomitant]
     Active Substance: LEVETIRACETAM
     Dosage: 300 MG, QD
     Route: 048
     Dates: start: 20190315
  14. DIACOMIT [Suspect]
     Active Substance: STIRIPENTOL
     Dosage: 350 MG, QD
     Route: 048
     Dates: start: 20171010
  15. MYSTAN [Suspect]
     Active Substance: CLOBAZAM
     Dosage: 3 MG,QD
     Route: 048
     Dates: start: 20180223, end: 20180830
  16. MYSTAN [Suspect]
     Active Substance: CLOBAZAM
     Dosage: 2.5 MG, QD
     Route: 048
     Dates: start: 20180831, end: 20181022
  17. MYSTAN [Suspect]
     Active Substance: CLOBAZAM
     Dosage: 2.5 MG, QD
     Route: 048
     Dates: start: 20181206
  18. LEVETIRACETAM. [Concomitant]
     Active Substance: LEVETIRACETAM
     Dosage: 200 MG, QD
     Route: 048
     Dates: start: 20170926, end: 20181205
  19. LEVETIRACETAM. [Concomitant]
     Active Substance: LEVETIRACETAM
     Dosage: 100 MG, QD
     Route: 048
     Dates: start: 20180223, end: 20180315
  20. MYSTAN [Suspect]
     Active Substance: CLOBAZAM
     Indication: SEVERE MYOCLONIC EPILEPSY OF INFANCY
     Dosage: 1.5 MG, QD
     Route: 048
     Dates: start: 20170727, end: 20170802
  21. LEVETIRACETAM. [Concomitant]
     Active Substance: LEVETIRACETAM
     Dosage: 200 MG, QD
     Route: 048
     Dates: start: 20180621, end: 20190314
  22. LUPIAL [Suspect]
     Active Substance: PHENOBARBITAL SODIUM
     Indication: SEVERE MYOCLONIC EPILEPSY OF INFANCY
     Dosage: 12.5 MG, QD
     Route: 054
     Dates: start: 20180104, end: 20180104
  23. SODIUM VALPROATE SANDOZ [Concomitant]
     Active Substance: VALPROATE SODIUM
     Dosage: 259.8 MG, QD
     Route: 048
     Dates: start: 20180509
  24. DIACOMIT [Suspect]
     Active Substance: STIRIPENTOL
     Indication: SEVERE MYOCLONIC EPILEPSY OF INFANCY
     Dosage: 75 MG, QD
     Route: 048
     Dates: start: 20170822, end: 20170828
  25. DIACOMIT [Suspect]
     Active Substance: STIRIPENTOL
     Dosage: 300 MG, QD
     Route: 048
     Dates: start: 20170905, end: 20171009
  26. MYSTAN [Suspect]
     Active Substance: CLOBAZAM
     Dosage: 5 MG, QD
     Route: 048
     Dates: start: 20170810, end: 20180111
  27. POTASSIUM BROMIDE [Concomitant]
     Active Substance: POTASSIUM BROMIDE
     Indication: SEVERE MYOCLONIC EPILEPSY OF INFANCY
     Dosage: 0.6 MG, QD
     Route: 048

REACTIONS (2)
  - Dizziness [Recovering/Resolving]
  - Somnolence [Recovered/Resolved]

NARRATIVE: CASE EVENT DATE: 20180104
